FAERS Safety Report 12331797 (Version 1)
Quarter: 2016Q2

REPORT INFORMATION
  Report Type: Spontaneous
  Country: US (occurrence: US)
  Receive Date: 20160504
  Receipt Date: 20160504
  Transmission Date: 20160815
  Serious: No
  Sender: FDA-Public Use
  Company Number: US-ROCHE-1640961

PATIENT
  Sex: Male
  Weight: 126.21 kg

DRUGS (1)
  1. ESBRIET [Suspect]
     Active Substance: PIRFENIDONE
     Indication: IDIOPATHIC PULMONARY FIBROSIS
     Dosage: 3 CAPSULES THRICE DAILY
     Route: 048
     Dates: start: 20150924

REACTIONS (7)
  - Ill-defined disorder [Unknown]
  - Tremor [Unknown]
  - Headache [Unknown]
  - Feeding disorder [Unknown]
  - Malaise [Unknown]
  - Gastric disorder [Unknown]
  - Diarrhoea [Unknown]
